FAERS Safety Report 9883640 (Version 3)
Quarter: 2014Q1

REPORT INFORMATION
  Report Type: Report from Study
  Country: TW (occurrence: TW)
  Receive Date: 20140210
  Receipt Date: 20140328
  Transmission Date: 20141002
  Serious: Yes (Death, Hospitalization)
  Sender: FDA-Public Use
  Company Number: TW-ROCHE-1345468

PATIENT
  Age: 56 Year
  Sex: Female
  Weight: 56.4 kg

DRUGS (4)
  1. TRASTUZUMAB EMTANSINE [Suspect]
     Indication: BREAST CANCER METASTATIC
     Route: 042
     Dates: start: 20131011, end: 20131126
  2. ZOLEDRONIC ACID [Concomitant]
     Indication: METASTASES TO BONE
     Route: 042
     Dates: start: 20120303, end: 20131012
  3. MEGESTROL [Concomitant]
     Indication: HYPOPHAGIA
     Route: 048
     Dates: start: 20131112, end: 20140117
  4. DIPHENHYDRAMINE HCL [Concomitant]
     Indication: PREMEDICATION
     Route: 042
     Dates: start: 20131011, end: 20131011

REACTIONS (5)
  - Jaundice [Fatal]
  - Hepatic encephalopathy [Fatal]
  - Altered state of consciousness [Not Recovered/Not Resolved]
  - Metastases to central nervous system [Unknown]
  - Thrombocytopenia [Unknown]
